FAERS Safety Report 4313812-X (Version None)
Quarter: 2004Q1

REPORT INFORMATION
  Report Type: 
  Country: None (occurrence: None)
  Receive Date: 20040304
  Receipt Date: 20031212
  Transmission Date: 20041129
  Serious: Yes (Hospitalization)
  Sender: FDA-Public Use
  Company Number: 2003124395

PATIENT
  Age: 33 Year
  Sex: Female

DRUGS (3)
  1. GEODON [Suspect]
     Indication: BIPOLAR DISORDER
     Dosage: 120 MG (DAILY)
     Dates: start: 20031128, end: 20031201
  2. SERTRALINE HCL [Concomitant]
  3. CONJUGATED ESTROGENS [Concomitant]

REACTIONS (2)
  - AKATHISIA [None]
  - INSOMNIA [None]
